FAERS Safety Report 5656064-0 (Version None)
Quarter: 2008Q1

REPORT INFORMATION
  Report Type: 
  Country: None (occurrence: None)
  Receive Date: 20080307
  Receipt Date: 20080225
  Transmission Date: 20080703
  Serious: Yes (Hospitalization)
  Sender: FDA-Public Use
  Company Number: DE-PFIZER INC-2008020079

PATIENT
  Sex: Female
  Weight: 62 kg

DRUGS (1)
  1. PREPIDIL [Suspect]
     Indication: LABOUR INDUCTION

REACTIONS (4)
  - ANAPHYLACTIC SHOCK [None]
  - DISSEMINATED INTRAVASCULAR COAGULATION [None]
  - THROMBOCYTOPENIA [None]
  - UTERINE ATONY [None]
